FAERS Safety Report 25612320 (Version 1)
Quarter: 2025Q3

REPORT INFORMATION
  Report Type: Spontaneous
  Country: IL (occurrence: IL)
  Receive Date: 20250728
  Receipt Date: 20250728
  Transmission Date: 20251020
  Serious: Yes (Other)
  Sender: SANOFI AVENTIS
  Company Number: IL-SA-2025SA214845

PATIENT
  Sex: Male

DRUGS (2)
  1. REZUROCK [Suspect]
     Active Substance: BELUMOSUDIL
     Dates: start: 202405
  2. REZUROCK [Suspect]
     Active Substance: BELUMOSUDIL
     Dates: start: 20241027

REACTIONS (3)
  - Arrhythmia [Unknown]
  - Renal failure [Unknown]
  - Condition aggravated [Unknown]
